FAERS Safety Report 8796554 (Version 1)
Quarter: 2012Q4

REPORT INFORMATION
  Report Type: 
  Country: VE (occurrence: VE)
  Receive Date: 20120920
  Receipt Date: 20120920
  Transmission Date: 20130627
  Serious: Yes (Other)
  Sender: FDA-Public Use
  Company Number: PHHY2011VE109226

PATIENT
  Sex: Female

DRUGS (5)
  1. XOLAIR [Suspect]
     Indication: RESPIRATORY TRACT INFECTION
     Dosage: 300 mg, UNK
     Route: 058
     Dates: start: 201012
  2. XOLAIR [Suspect]
     Dosage: 300 mg, UNK
     Route: 058
     Dates: start: 201012, end: 201109
  3. FORADIL [Suspect]
     Indication: PNEUMONIA
     Dosage: 1 DF, BID
     Route: 048
     Dates: start: 201012, end: 201111
  4. MIFLONIDE [Suspect]
     Indication: PNEUMONIA
     Dosage: 1 DF, BID
     Route: 048
     Dates: start: 201012, end: 201111
  5. AIRON [Concomitant]
     Indication: PNEUMONIA
     Dosage: UNK UKN, BID
     Dates: start: 201012, end: 201111

REACTIONS (1)
  - Urinary tract infection [Recovered/Resolved]
